FAERS Safety Report 4887582-0 (Version None)
Quarter: 2006Q1

REPORT INFORMATION
  Report Type: 
  Country: None (occurrence: None)
  Receive Date: 20060123
  Receipt Date: 20060116
  Transmission Date: 20060701
  Serious: Yes (Other)
  Sender: FDA-Public Use
  Company Number: PHFR2006GB00560

PATIENT
  Age: 66 Year
  Sex: Male

DRUGS (4)
  1. ZOMETA [Suspect]
     Indication: MULTIPLE MYELOMA
     Dosage: 4MG/DAY
     Route: 042
     Dates: start: 20020515, end: 20051108
  2. PAMIDRONATE DISODIUM [Suspect]
     Indication: MULTIPLE MYELOMA
     Dosage: 90MG/DAY
     Route: 042
     Dates: start: 20000502, end: 20020515
  3. INTERFERON ALFA [Concomitant]
     Indication: MULTIPLE MYELOMA
     Route: 058
     Dates: start: 20001031
  4. CYCLOPHOSPHAMIDE [Concomitant]
     Indication: MULTIPLE MYELOMA
     Dosage: 200 MG, BIW
     Route: 048
     Dates: start: 20031004

REACTIONS (2)
  - OSTEONECROSIS [None]
  - PAIN IN JAW [None]
